FAERS Safety Report 9939075 (Version 1)
Quarter: 2014Q1

REPORT INFORMATION
  Report Type: Report from Study
  Country: US (occurrence: US)
  Receive Date: 20140303
  Receipt Date: 20140303
  Transmission Date: 20141002
  Serious: No
  Sender: FDA-Public Use
  Company Number: US-ABBVIE-13P-163-1032925-00

PATIENT
  Age: 42 Year
  Sex: Male

DRUGS (6)
  1. HUMIRA [Suspect]
     Indication: PSORIASIS
     Dosage: 80MG LOADING, THEN 40MG ONE WEEK LATER
     Dates: start: 201212
  2. TEGRETOL [Concomitant]
     Indication: CONVULSION
     Dosage: 100MG IN THE MORNING AND 200MG IN THE EVENING
  3. ALBUTEROL [Concomitant]
     Indication: CHRONIC OBSTRUCTIVE PULMONARY DISEASE
  4. FULTICASONE [Concomitant]
     Indication: PSORIASIS
  5. LIDOCAINE [Concomitant]
     Indication: PRURITUS
  6. FLUOCINONIDE [Concomitant]
     Indication: PSORIASIS

REACTIONS (9)
  - Back pain [Not Recovered/Not Resolved]
  - Arthralgia [Not Recovered/Not Resolved]
  - Pain in extremity [Not Recovered/Not Resolved]
  - Pain in extremity [Not Recovered/Not Resolved]
  - Oedema [Not Recovered/Not Resolved]
  - Gait disturbance [Not Recovered/Not Resolved]
  - Pain [Not Recovered/Not Resolved]
  - Weight decreased [Not Recovered/Not Resolved]
  - Rash papular [Not Recovered/Not Resolved]
